FAERS Safety Report 4315054-0 (Version None)
Quarter: 2004Q1

REPORT INFORMATION
  Report Type: 
  Country: None (occurrence: None)
  Receive Date: 20040309
  Receipt Date: 20040224
  Transmission Date: 20041129
  Serious: Yes (Disabling)
  Sender: FDA-Public Use
  Company Number: US_0402101035

PATIENT
  Age: 53 Year
  Sex: Female
  Weight: 61 kg

DRUGS (2)
  1. GEMZAR [Suspect]
     Indication: LUNG NEOPLASM MALIGNANT
     Dosage: 1700 MG
     Dates: start: 20031201
  2. CISPLATIN [Concomitant]

REACTIONS (2)
  - DEAFNESS NEUROSENSORY [None]
  - DRUG TOXICITY [None]
